FAERS Safety Report 7435613-6 (Version None)
Quarter: 2011Q2

REPORT INFORMATION
  Report Type: 
  Country: None (occurrence: None)
  Receive Date: 20110425
  Receipt Date: 20110214
  Transmission Date: 20111010
  Serious: Yes (Hospitalization, Other)
  Sender: FDA-Public Use
  Company Number: US-BAYER-201038350NA

PATIENT
  Age: 22 Year
  Sex: Female

DRUGS (7)
  1. IV FLUIDS [Concomitant]
  2. YAZ [Suspect]
     Indication: PRODUCT USED FOR UNKNOWN INDICATION
     Route: 048
     Dates: start: 20071101, end: 20080301
  3. ZOSYN [Concomitant]
  4. IBUPROFEN [Concomitant]
     Dosage: UNK UNK, CONT
     Dates: start: 20080307
  5. ULTRAM [Concomitant]
  6. PRENATAL VITAMINS [Concomitant]
  7. PAIN MEDICATIONS [Concomitant]

REACTIONS (7)
  - PANCREATITIS [None]
  - NAUSEA [None]
  - JAUNDICE [None]
  - POST CHOLECYSTECTOMY SYNDROME [None]
  - PAIN [None]
  - CHOLECYSTITIS [None]
  - VOMITING [None]
